FAERS Safety Report 21541112 (Version 1)
Quarter: 2022Q4

REPORT INFORMATION
  Report Type: Spontaneous
  Country: BE (occurrence: BE)
  Receive Date: 20221102
  Receipt Date: 20221102
  Transmission Date: 20230113
  Serious: Yes (Hospitalization)
  Sender: FDA-Public Use
  Company Number: BE-MYLANLABS-2022M1119019

PATIENT
  Age: 13 Year
  Sex: Male

DRUGS (3)
  1. ZOLEDRONIC ACID [Suspect]
     Active Substance: ZOLEDRONIC ACID
     Indication: Hypercalcaemia
     Dosage: UNK (FOLLOWING THE FIRST AND SINGLE ADMINISTRATION OF ZOLEDRONIC-ACID)
     Route: 065
  2. CALCIUM [Concomitant]
     Active Substance: CALCIUM
     Indication: Mineral supplementation
     Dosage: 1000 MILLIGRAM
     Route: 065
  3. VITAMIN D [Concomitant]
     Active Substance: VITAMIN D NOS
     Indication: Vitamin supplementation
     Dosage: 800 INTERNATIONAL UNIT
     Route: 065

REACTIONS (7)
  - Electrocardiogram QT prolonged [Unknown]
  - Nephrocalcinosis [Recovering/Resolving]
  - Paraesthesia [Unknown]
  - Hypocalcaemia [Recovering/Resolving]
  - Hypomagnesaemia [Recovering/Resolving]
  - Hypophosphataemia [Recovering/Resolving]
  - Hypokalaemia [Recovering/Resolving]
